FAERS Safety Report 8539646-8 (Version None)
Quarter: 2012Q3

REPORT INFORMATION
  Report Type: 
  Country: None (occurrence: None)
  Receive Date: 20120726
  Receipt Date: 20070424
  Transmission Date: 20120928
  Serious: Yes (Other)
  Sender: FDA-Public Use
  Company Number: CO-PFIZER INC-2012177726

PATIENT
  Age: 85 Year
  Sex: Female

DRUGS (4)
  1. ASPIRIN [Concomitant]
     Dosage: 100 MG EVERY 24 HOURS
  2. LIPITOR [Suspect]
     Dosage: 10 MG EVERY 24 HOURS
  3. CAPTOPRIL [Concomitant]
     Dosage: 50 MG EVERY 8 HOURS
  4. METOPROLOL TARTRATE [Concomitant]
     Dosage: 100 MG EVERY 12 HOURS

REACTIONS (1)
  - ASPHYXIA [None]
